FAERS Safety Report 5720948 (Version 8)
Quarter: 2018Q4

REPORT INFORMATION
  Report Type: Spontaneous
  Country: GB (occurrence: GB)
  Receive Date: 20050124
  Receipt Date: 20181119
  Transmission Date: 20190205
  Serious: Yes (Congenital Anomaly)
  Sender: FDA-Public Use
  Company Number: GB-ROCHE-393000

PATIENT
  Sex: Female
  Weight: 2.9 kg

DRUGS (1)
  1. MYCOPHENOLATE MOFETIL. [Suspect]
     Active Substance: MYCOPHENOLATE MOFETIL
     Indication: ERYTHEMA MULTIFORME
     Route: 064
     Dates: start: 20040301, end: 20040305

REACTIONS (4)
  - Coloboma [Unknown]
  - Iris coloboma [Unknown]
  - External auditory canal atresia [Unknown]
  - Microtia [Unknown]
